FAERS Safety Report 5627403-1 (Version None)
Quarter: 2008Q1

REPORT INFORMATION
  Report Type: 
  Country: None (occurrence: None)
  Receive Date: 20080215
  Receipt Date: 20080207
  Transmission Date: 20080703
  Serious: Yes (Hospitalization)
  Sender: FDA-Public Use
  Company Number: AU-NOVOPROD-271987

PATIENT

DRUGS (2)
  1. NOVORAPID PENFILL [Suspect]
     Indication: TYPE 1 DIABETES MELLITUS
  2. PROTAPHANE PENFILL [Suspect]
     Indication: TYPE 1 DIABETES MELLITUS

REACTIONS (1)
  - JOINT INJURY [None]
